FAERS Safety Report 9802760 (Version 1)
Quarter: 2014Q1

REPORT INFORMATION
  Report Type: Spontaneous
  Country: IN (occurrence: IN)
  Receive Date: 20140108
  Receipt Date: 20140108
  Transmission Date: 20141002
  Serious: Yes (Death)
  Sender: FDA-Public Use
  Company Number: IN-009507513-1401IND001525

PATIENT
  Age: 71 Year
  Sex: Male

DRUGS (2)
  1. JANUMET [Suspect]
     Dosage: 2 DF
  2. INSULIN HUMAN [Concomitant]
     Dosage: 30/70 TWICE A DAY 26 UNITS BEFORE BREAKFAST AND 20 UNITS BEFORE DINNER

REACTIONS (1)
  - Myocardial infarction [Fatal]
